FAERS Safety Report 9489420 (Version 3)
Quarter: 2013Q3

REPORT INFORMATION
  Report Type: Spontaneous
  Country: US (occurrence: US)
  Receive Date: 20130725
  Receipt Date: 20130920
  Transmission Date: 20140515
  Serious: Yes (Hospitalization)
  Sender: FDA-Public Use
  Company Number: US-GLAXOSMITHKLINE-A1001569A

PATIENT
  Age: 66 Year
  Sex: Female
  Weight: 60 kg

DRUGS (2)
  1. AVANDARYL [Suspect]
     Indication: DIABETES MELLITUS
     Route: 048
     Dates: start: 20060512, end: 20090916
  2. AVANDIA [Suspect]
     Indication: DIABETES MELLITUS
     Route: 048
     Dates: end: 200904

REACTIONS (14)
  - Myocardial infarction [Unknown]
  - Cardiac failure congestive [Unknown]
  - Coronary artery disease [Unknown]
  - Stent placement [Unknown]
  - Catheterisation cardiac [Unknown]
  - Angioplasty [Unknown]
  - Atrial fibrillation [Unknown]
  - Muscle spasms [Unknown]
  - Muscle spasms [Unknown]
  - Fluid retention [Unknown]
  - Wheezing [Unknown]
  - Cough [Unknown]
  - Chest discomfort [Unknown]
  - Muscle atrophy [Unknown]
